FAERS Safety Report 10911330 (Version 2)
Quarter: 2015Q2

REPORT INFORMATION
  Report Type: Report from Study
  Country: CA (occurrence: CA)
  Receive Date: 20150313
  Receipt Date: 20150525
  Transmission Date: 20150821
  Serious: Yes (Hospitalization)
  Sender: FDA-Public Use
  Company Number: CA-ROCHE-1550606

PATIENT
  Age: 47 Year
  Sex: Female

DRUGS (1)
  1. XOLAIR [Suspect]
     Active Substance: OMALIZUMAB
     Indication: CHRONIC SPONTANEOUS URTICARIA
     Route: 058
     Dates: start: 20150225

REACTIONS (11)
  - Hypotension [Unknown]
  - Fatigue [Unknown]
  - Chills [Unknown]
  - Oedema [Unknown]
  - Urticaria [Unknown]
  - Malaise [Unknown]
  - Feeling cold [Unknown]
  - Skin plaque [Unknown]
  - Disturbance in attention [Unknown]
  - Dyspnoea [Unknown]
  - Erythema [Unknown]

NARRATIVE: CASE EVENT DATE: 20150227
